FAERS Safety Report 8241668-1 (Version None)
Quarter: 2012Q1

REPORT INFORMATION
  Report Type: 
  Country: None (occurrence: None)
  Receive Date: 20120328
  Receipt Date: 20120320
  Transmission Date: 20120608
  Serious: Yes (Death)
  Sender: FDA-Public Use
  Company Number: US-ABBOTT-12P-163-0916434-00

PATIENT
  Sex: Male
  Weight: 94.886 kg

DRUGS (12)
  1. GOLD SEAL ANTISEPTIC POWDER [Concomitant]
     Indication: PRODUCT USED FOR UNKNOWN INDICATION
  2. VITAMIN D [Concomitant]
     Indication: PRODUCT USED FOR UNKNOWN INDICATION
  3. LOVAZA [Concomitant]
     Indication: PRODUCT USED FOR UNKNOWN INDICATION
  4. HYDROXYCHLOROQUINE SULFATE [Concomitant]
     Indication: RHEUMATOID ARTHRITIS
  5. MULTI-VITAMIN [Concomitant]
     Indication: PRODUCT USED FOR UNKNOWN INDICATION
  6. ANDRODERM [Concomitant]
     Indication: PRODUCT USED FOR UNKNOWN INDICATION
  7. HUMIRA [Suspect]
     Indication: RHEUMATOID ARTHRITIS
     Route: 058
     Dates: start: 20110501
  8. VIAGRA [Concomitant]
     Indication: PRODUCT USED FOR UNKNOWN INDICATION
  9. CLARITIN [Concomitant]
     Indication: PRODUCT USED FOR UNKNOWN INDICATION
  10. HYDROXYCLOR [Concomitant]
     Indication: PRODUCT USED FOR UNKNOWN INDICATION
  11. SIMCOR [Concomitant]
     Indication: PRODUCT USED FOR UNKNOWN INDICATION
  12. METHOTREXATE [Concomitant]
     Indication: RHEUMATOID ARTHRITIS
     Route: 048

REACTIONS (14)
  - ASTHENIA [None]
  - DYSPNOEA [None]
  - WHITE BLOOD CELL COUNT INCREASED [None]
  - PULMONARY MASS [None]
  - RHEUMATOID ARTHRITIS [None]
  - BONE MARROW DISORDER [None]
  - OSTEOLYSIS [None]
  - WEIGHT DECREASED [None]
  - LEUKOCYTOSIS [None]
  - THROMBOCYTOPENIA [None]
  - FEELING ABNORMAL [None]
  - C-REACTIVE PROTEIN INCREASED [None]
  - LUNG CANCER METASTATIC [None]
  - METASTATIC NEOPLASM [None]
